FAERS Safety Report 8909778 (Version 1)
Quarter: 2012Q4

REPORT INFORMATION
  Report Type: Spontaneous
  Country: US (occurrence: None)
  Receive Date: 20121109
  Receipt Date: 20121109
  Transmission Date: 20130627
  Serious: Yes (Hospitalization)
  Sender: FDA-Public Use
  Company Number: 1475848

PATIENT
  Age: 89 Year
  Sex: Male

DRUGS (3)
  1. PIPERACILLIN AND TAZOBACTAM [Suspect]
     Indication: ANTIBIOTIC THERAPY
     Dosage: intravenous (not otherwise specified)
     Route: 042
  2. AMOXICILLIN CLAVULANIC ACID [Suspect]
     Route: 048
  3. NITROFURANTOIN [Suspect]
     Route: 048

REACTIONS (5)
  - Diarrhoea [None]
  - Malaise [None]
  - Decreased appetite [None]
  - Weight decreased [None]
  - Staphylococcal infection [None]
